FAERS Safety Report 4314460-8 (Version None)
Quarter: 2004Q1

REPORT INFORMATION
  Report Type: 
  Country: None (occurrence: None)
  Receive Date: 20040308
  Receipt Date: 20040223
  Transmission Date: 20041129
  Serious: Yes (Hospitalization, Other)
  Sender: FDA-Public Use
  Company Number: 1998-001299

PATIENT
  Age: 30 Year
  Sex: Male

DRUGS (7)
  1. VIRACEPT [Suspect]
     Indication: HIV TEST POSITIVE
     Dosage: 2250 MG (TID), ORAL
     Route: 048
     Dates: start: 19971013
  2. DILANTIN [Suspect]
     Indication: CONVULSION
     Dosage: 300 MG (DAILY)
     Dates: start: 19910101
  3. STAVUDINE (STAVUDINE) [Concomitant]
  4. PHENOBARBITAL TAB [Concomitant]
  5. LOPERAMIDE HCL [Concomitant]
  6. PHELLOBERIN A (CLIOQUINOL BERBERINE HYDROCHLORIDE, CARMELLOSE SODIUM) [Concomitant]
  7. DIDANOSINE (DIDANOSINE) [Concomitant]

REACTIONS (4)
  - BLOOD GLUCOSE DECREASED [None]
  - DIARRHOEA [None]
  - DRUG INTERACTION [None]
  - GRAND MAL CONVULSION [None]
